FAERS Safety Report 8722651 (Version 3)
Quarter: 2012Q4

REPORT INFORMATION
  Report Type: Report from Study
  Country: GB (occurrence: GB)
  Receive Date: 20120814
  Receipt Date: 20121123
  Transmission Date: 20130627
  Serious: Yes (Hospitalization)
  Sender: FDA-Public Use
  Company Number: GB-ROCHE-1098376

PATIENT
  Age: 56 Year
  Sex: Female
  Weight: 64.85 kg

DRUGS (11)
  1. TRASTUZUMAB [Suspect]
     Indication: BREAST CANCER
     Dosage: date of last dose prior to SAE- 24/Jul/2012
     Route: 042
     Dates: start: 20120724
  2. CARBOPLATIN [Suspect]
     Indication: BREAST CANCER
     Dosage: date of last dose prior to SAE-24/Jul/2012
     Route: 042
     Dates: start: 20120724
  3. DOCETAXEL [Suspect]
     Indication: BREAST CANCER
     Dosage: date of last dose prior to SAE- 24/Jul/2012
     Route: 042
     Dates: start: 20120724
  4. PARACETAMOL [Concomitant]
     Route: 065
     Dates: start: 20120804
  5. LETROZOLE [Concomitant]
     Route: 065
     Dates: start: 201204, end: 20120814
  6. METOCLOPRAMID [Concomitant]
     Dosage: 40 to 80 mg
     Route: 065
     Dates: start: 20120724
  7. BENDROFLUMETHIAZID [Concomitant]
     Route: 065
     Dates: start: 2009
  8. ADCAL-D3 [Concomitant]
     Dosage: Dose: 1.5g/400
     Route: 065
     Dates: start: 20120629
  9. ONDANSETRON [Concomitant]
     Route: 065
     Dates: start: 20120724
  10. G-CSF [Concomitant]
     Route: 065
     Dates: start: 20120724, end: 20120730
  11. PERTUZUMAB [Suspect]
     Indication: BREAST CANCER
     Route: 042
     Dates: start: 20120724

REACTIONS (1)
  - Colitis [Recovered/Resolved]
